FAERS Safety Report 6695737-8 (Version None)
Quarter: 2010Q2

REPORT INFORMATION
  Report Type: 
  Country: None (occurrence: None)
  Receive Date: 20100423
  Receipt Date: 20100423
  Transmission Date: 20101027
  Serious: Yes (Other)
  Sender: FDA-Public Use
  Company Number: None

PATIENT
  Age: 53 Year
  Sex: Female
  Weight: 63.5036 kg

DRUGS (1)
  1. TERBINAFINE HYDROCHLORIDE [Suspect]
     Indication: FUNGAL SKIN INFECTION
     Dosage: ONE TABLET DAILY PO
     Route: 048
     Dates: start: 20100215, end: 20100403

REACTIONS (2)
  - DYSGEUSIA [None]
  - DYSPHAGIA [None]
